FAERS Safety Report 4348097-1 (Version None)
Quarter: 2004Q1

REPORT INFORMATION
  Report Type: 
  Country: None (occurrence: None)
  Receive Date: 20040325
  Receipt Date: 20040209
  Transmission Date: 20041129
  Serious: No
  Sender: FDA-Public Use
  Company Number: USA040258850

PATIENT
  Age: 72 Year
  Sex: Female

DRUGS (10)
  1. FORTEO [Suspect]
     Indication: OSTEOPOROSIS
     Dosage: 20 UG/DAY
     Dates: start: 20031201
  2. ALTACE [Concomitant]
  3. PENTA-TRIAMTERENE HCTZ [Concomitant]
  4. GLUCOPHAGE XR (METFORMIN HYDROCHLORIDE) [Concomitant]
  5. AMARYL [Concomitant]
  6. LIPITOR [Concomitant]
  7. NEXIUM [Concomitant]
  8. BABY ASPIRIN (ACETYLSALICYCLIC ACID) [Concomitant]
  9. CALCIUM [Concomitant]
  10. VITAMIN E [Concomitant]

REACTIONS (4)
  - BACK PAIN [None]
  - BLOOD GLUCOSE INCREASED [None]
  - BLOOD PRESSURE INCREASED [None]
  - CONSTIPATION [None]
